FAERS Safety Report 24033481 (Version 1)
Quarter: 2024Q3

REPORT INFORMATION
  Report Type: Spontaneous
  Country: US (occurrence: US)
  Receive Date: 20240701
  Receipt Date: 20240701
  Transmission Date: 20241017
  Serious: No
  Sender: UCB
  Company Number: US-UCBSA-2024016177

PATIENT
  Age: 14 Year
  Sex: Female
  Weight: 50.3 kg

DRUGS (5)
  1. MIDAZOLAM [Suspect]
     Active Substance: MIDAZOLAM
     Indication: Sedation
     Dosage: 4 MILLIGRAM
     Dates: start: 2023
  2. MIDAZOLAM [Suspect]
     Active Substance: MIDAZOLAM
     Indication: Off label use
  3. IBUPROFEN [Concomitant]
     Active Substance: IBUPROFEN
     Indication: Pain
     Dosage: UNK
  4. LIDOCAINE [Concomitant]
     Active Substance: LIDOCAINE
     Indication: Anaesthesia
     Dosage: 1:1 MIXTURE OF 1 % LIDOCAINE AND 0.5 % MARCAINE
     Dates: start: 2023
  5. MARCAINE [Concomitant]
     Active Substance: BUPIVACAINE HYDROCHLORIDE
     Indication: Anaesthesia
     Dosage: 1:1 MIXTURE OF 1 % LIDOCAINE AND 0.5 % MARCAINE
     Dates: start: 2023

REACTIONS (1)
  - No adverse event [Unknown]
